FAERS Safety Report 5931474-2 (Version None)
Quarter: 2008Q4

REPORT INFORMATION
  Report Type: 
  Country: None (occurrence: None)
  Receive Date: 20081009
  Receipt Date: 20080603
  Transmission Date: 20090506
  Serious: Yes (Death)
  Sender: FDA-Public Use
  Company Number: PHEH2008US04822

PATIENT
  Age: 61 Year
  Sex: Male

DRUGS (1)
  1. ZOMETA [Suspect]
     Indication: LUNG CARCINOMA CELL TYPE UNSPECIFIED STAGE IV
     Dosage: 4 MG, Q21-28 DAYS, INTRAVENOUS
     Route: 042
     Dates: start: 20071022, end: 20071206

REACTIONS (1)
  - LUNG CANCER METASTATIC [None]
